FAERS Safety Report 9774974 (Version 2)
Quarter: 2013Q4

REPORT INFORMATION
  Report Type: Report from Study
  Country: US (occurrence: US)
  Receive Date: 20131220
  Receipt Date: 20131226
  Transmission Date: 20140711
  Serious: No
  Sender: FDA-Public Use
  Company Number: US-ABBVIE-12P-163-1018054-00

PATIENT
  Sex: Male

DRUGS (5)
  1. LUPRON DEPOT [Suspect]
     Indication: PROSTATE CANCER
     Dates: start: 201103
  2. ZOCOR [Concomitant]
     Indication: PRODUCT USED FOR UNKNOWN INDICATION
  3. HYZAAR [Concomitant]
     Indication: PRODUCT USED FOR UNKNOWN INDICATION
  4. FLOMAX [Concomitant]
     Indication: PRODUCT USED FOR UNKNOWN INDICATION
  5. OTC SLEEP AID [Concomitant]
     Indication: SLEEP DISORDER THERAPY

REACTIONS (4)
  - Hot flush [Unknown]
  - Hyperhidrosis [Unknown]
  - Fatigue [Unknown]
  - Asthenia [Unknown]
